FAERS Safety Report 9053809 (Version 1)
Quarter: 2013Q1

REPORT INFORMATION
  Report Type: Spontaneous
  Country: US (occurrence: US)
  Receive Date: 20130207
  Receipt Date: 20130207
  Transmission Date: 20140127
  Serious: Yes (Hospitalization, Other)
  Sender: FDA-Public Use
  Company Number: US-GLAXOSMITHKLINE-A1010633A

PATIENT
  Age: 61 Year
  Sex: Female

DRUGS (4)
  1. IMITREX [Suspect]
     Indication: HEADACHE
     Dosage: 6MG SINGLE DOSE
     Route: 042
  2. AMITRIPTYLINE [Concomitant]
  3. CARAFATE [Concomitant]
  4. LISINOPRIL [Concomitant]

REACTIONS (3)
  - Chest pain [Unknown]
  - Sedation [Unknown]
  - Incorrect route of drug administration [Unknown]
